FAERS Safety Report 9484781 (Version 9)
Quarter: 2015Q3

REPORT INFORMATION
  Report Type: Spontaneous
  Country: US (occurrence: US)
  Receive Date: 20130828
  Receipt Date: 20150924
  Transmission Date: 20151125
  Serious: Yes (Hospitalization, Other)
  Sender: FDA-Public Use
  Company Number: US-GLAXOSMITHKLINE-A1039383A

PATIENT
  Age: 75 Year
  Sex: Female

DRUGS (8)
  1. AMLODIPINE [Concomitant]
     Active Substance: AMLODIPINE BESYLATE
  2. OXYGEN. [Concomitant]
     Active Substance: OXYGEN
  3. PROAIR HFA [Suspect]
     Active Substance: ALBUTEROL SULFATE
     Indication: ASTHMA
  4. PROAIR HFA [Suspect]
     Active Substance: ALBUTEROL SULFATE
     Indication: CHRONIC OBSTRUCTIVE PULMONARY DISEASE
     Route: 055
  5. VENTOLIN HFA [Suspect]
     Active Substance: ALBUTEROL SULFATE
     Indication: ASTHMA
     Dosage: 90 MCG
     Dates: start: 2014
  6. XANAX [Concomitant]
     Active Substance: ALPRAZOLAM
  7. NISOLDIPINE. [Concomitant]
     Active Substance: NISOLDIPINE
  8. VENTOLIN HFA [Suspect]
     Active Substance: ALBUTEROL SULFATE
     Indication: CHRONIC OBSTRUCTIVE PULMONARY DISEASE
     Dosage: 90 MCG
     Route: 055
     Dates: start: 20130911

REACTIONS (18)
  - Renal surgery [Recovering/Resolving]
  - Asthenia [Recovering/Resolving]
  - Drug ineffective [Recovering/Resolving]
  - Hospitalisation [Unknown]
  - Lower limb fracture [Unknown]
  - Gait disturbance [Unknown]
  - Cast application [Unknown]
  - Hypersensitivity [Unknown]
  - Weight bearing difficulty [Unknown]
  - Neoplasm malignant [Recovered/Resolved]
  - Injury [Unknown]
  - Wheelchair user [Unknown]
  - Colon cancer stage III [Unknown]
  - Renal disorder [Recovering/Resolving]
  - Walking aid user [Unknown]
  - Colon cancer [Unknown]
  - Inhalation therapy [Recovering/Resolving]
  - Orthosis user [Unknown]

NARRATIVE: CASE EVENT DATE: 2010
